FAERS Safety Report 5514421-7 (Version None)
Quarter: 2007Q4

REPORT INFORMATION
  Report Type: 
  Country: None (occurrence: None)
  Receive Date: 20071113
  Receipt Date: 20070516
  Transmission Date: 20080405
  Serious: No
  Sender: FDA-Public Use
  Company Number: A0651563A

PATIENT
  Age: 71 Year
  Sex: Female

DRUGS (4)
  1. COREG [Suspect]
     Indication: HYPERTENSION
     Dosage: 3.125MG TWICE PER DAY
     Route: 048
     Dates: start: 20070101
  2. LIPITOR [Concomitant]
  3. PLAVIX [Concomitant]
  4. SYNTHROID [Concomitant]

REACTIONS (1)
  - FATIGUE [None]
